FAERS Safety Report 23411424 (Version 1)
Quarter: 2024Q1

REPORT INFORMATION
  Report Type: Spontaneous
  Country: BG (occurrence: BG)
  Receive Date: 20240117
  Receipt Date: 20240117
  Transmission Date: 20240410
  Serious: Yes (Other)
  Sender: FDA-Public Use
  Company Number: BG-PFIZER INC-PV202400005601

PATIENT
  Sex: Female

DRUGS (1)
  1. DIFLUCAN [Suspect]
     Active Substance: FLUCONAZOLE
     Dosage: UNK

REACTIONS (7)
  - Vaginal discharge [Unknown]
  - Vulvovaginal pruritus [Unknown]
  - Skin burning sensation [Unknown]
  - Pruritus [Unknown]
  - Facial pain [Unknown]
  - Erythema [Unknown]
  - Swelling face [Unknown]
